FAERS Safety Report 4521892-1 (Version None)
Quarter: 2004Q4

REPORT INFORMATION
  Report Type: 
  Country: None (occurrence: None)
  Receive Date: 20041207
  Receipt Date: 20041207
  Transmission Date: 20050328
  Serious: Yes (Other)
  Sender: FDA-Public Use
  Company Number: None

PATIENT
  Age: 67 Year
  Sex: Female
  Weight: 61.2356 kg

DRUGS (3)
  1. ALPRAZOLAM [Suspect]
     Indication: DEPRESSION
     Dosage: 1   3 TIMES PER DA
  2. ALPRAZOLAM [Suspect]
     Indication: HEADACHE
     Dosage: 1   3 TIMES PER DA
  3. ALPRAZOLAM [Suspect]
     Indication: NERVOUSNESS
     Dosage: 1   3 TIMES PER DA

REACTIONS (2)
  - DRUG INEFFECTIVE [None]
  - PHARMACEUTICAL PRODUCT COMPLAINT [None]
